FAERS Safety Report 8415718-3 (Version None)
Quarter: 2012Q2

REPORT INFORMATION
  Report Type: 
  Country: None (occurrence: None)
  Receive Date: 20120606
  Receipt Date: 20120529
  Transmission Date: 20120825
  Serious: Yes (Life-Threatening, Hospitalization)
  Sender: FDA-Public Use
  Company Number: PH-JNJFOC-20081201068

PATIENT
  Sex: Female
  Weight: 48 kg

DRUGS (22)
  1. PREDNISONE [Concomitant]
     Route: 048
     Dates: start: 20081130, end: 20090225
  2. GOLIMUMAB [Suspect]
     Indication: RHEUMATOID ARTHRITIS
     Route: 058
     Dates: start: 20080725
  3. GOLIMUMAB [Suspect]
     Route: 058
     Dates: start: 20080521
  4. GOLIMUMAB [Suspect]
     Route: 058
     Dates: start: 20090225
  5. METHOTREXATE [Suspect]
     Route: 048
     Dates: start: 20070405, end: 20070830
  6. PREDNISONE [Concomitant]
     Route: 048
     Dates: start: 20061206
  7. MOBIC [Concomitant]
     Route: 048
     Dates: start: 20070725
  8. GOLIMUMAB [Suspect]
     Route: 058
     Dates: start: 20081119
  9. GOLIMUMAB [Suspect]
     Route: 058
     Dates: start: 20081010
  10. METHOTREXATE [Suspect]
     Indication: RHEUMATOID ARTHRITIS
     Route: 048
     Dates: start: 20070906, end: 20080225
  11. FOLIC ACID [Concomitant]
     Route: 048
     Dates: start: 20070223, end: 20081217
  12. METHOTREXATE [Concomitant]
     Route: 048
     Dates: start: 20080802, end: 20081128
  13. GOLIMUMAB [Suspect]
     Route: 058
     Dates: start: 20080813
  14. METHOTREXATE [Suspect]
     Route: 048
     Dates: start: 20070329, end: 20070329
  15. METHOTREXATE [Suspect]
     Route: 048
     Dates: start: 20070322, end: 20070522
  16. GOLIMUMAB [Suspect]
     Route: 058
     Dates: start: 20080910
  17. METHOTREXATE [Suspect]
     Route: 048
     Dates: start: 20070222, end: 20070301
  18. NEUROBION [Concomitant]
     Route: 048
     Dates: start: 20060601
  19. CALTRATE PLUS [Concomitant]
     Route: 048
     Dates: start: 20061009
  20. GOLIMUMAB [Suspect]
     Route: 058
     Dates: start: 20110706
  21. GOLIMUMAB [Suspect]
     Route: 058
     Dates: start: 20080621
  22. METHOTREXATE [Suspect]
     Route: 048
     Dates: start: 20070308, end: 20070315

REACTIONS (2)
  - PNEUMONIA [None]
  - SEPSIS [None]
